FAERS Safety Report 8105342-4 (Version None)
Quarter: 2012Q1

REPORT INFORMATION
  Report Type: 
  Country: None (occurrence: None)
  Receive Date: 20120201
  Receipt Date: 20120124
  Transmission Date: 20120608
  Serious: Yes (Hospitalization)
  Sender: FDA-Public Use
  Company Number: FR-PFIZER INC-FR-WYE-H12011209

PATIENT
  Age: 87 Year
  Sex: Female

DRUGS (6)
  1. TRANSIPEG [Concomitant]
     Indication: CONSTIPATION
     Dosage: AS NEEDED
     Route: 048
  2. ACETAMINOPHEN [Concomitant]
     Indication: ARTHRALGIA
     Dosage: AS NEEDED
     Route: 048
  3. RAMIPRIL [Suspect]
     Indication: HYPERTENSION
     Dosage: 2.5 MG IN THE AM AND 1.25 MG IN THE PM
     Route: 048
     Dates: end: 20090328
  4. PREVISCAN [Concomitant]
     Indication: ARRHYTHMIA
     Dosage: 15 MG, 1X/DAY
     Route: 048
  5. CORDARONE [Suspect]
     Indication: ARRHYTHMIA
     Dosage: 200 MG, 1X/DAY
     Route: 048
     Dates: end: 20090328
  6. RAMIPRIL [Suspect]
     Dosage: 2.5 MG, 1X/DAY
     Route: 048
     Dates: start: 20090329

REACTIONS (2)
  - HYPERKALAEMIA [None]
  - RENAL FAILURE ACUTE [None]
